FAERS Safety Report 6286307-4 (Version None)
Quarter: 2009Q3

REPORT INFORMATION
  Report Type: 
  Country: None (occurrence: None)
  Receive Date: 20090727
  Receipt Date: 20090727
  Transmission Date: 20100115
  Serious: Yes (Other)
  Sender: FDA-Public Use
  Company Number: None

PATIENT
  Sex: Female
  Weight: 58.9676 kg

DRUGS (1)
  1. YAZ [Suspect]
     Indication: CONTRACEPTION
     Dates: start: 20080601, end: 20090301

REACTIONS (7)
  - ALOPECIA [None]
  - ANXIETY [None]
  - DEPRESSION [None]
  - FUNGAL INFECTION [None]
  - GASTRIC DISORDER [None]
  - URINARY TRACT INFECTION [None]
  - VAGINAL HAEMORRHAGE [None]
